FAERS Safety Report 7020417-9 (Version None)
Quarter: 2010Q3

REPORT INFORMATION
  Report Type: 
  Country: None (occurrence: None)
  Receive Date: 20100927
  Receipt Date: 20100914
  Transmission Date: 20110219
  Serious: Yes (Hospitalization)
  Sender: FDA-Public Use
  Company Number: 009557

PATIENT
  Age: 61 Year
  Sex: Male

DRUGS (10)
  1. PLETAL [Suspect]
     Indication: ARTERIOSCLEROSIS OBLITERANS
     Dosage: 50 MG, BID ORAL
     Route: 048
     Dates: start: 20090124, end: 20090602
  2. CRESTOR (ROSUVASTATIN) TABLET [Concomitant]
  3. CIBENOL (CIBENZOLINE SUCCINATE) [Concomitant]
  4. DEPAS (ETIZOLAM) [Concomitant]
  5. SELBEX (TEPRENONE) [Concomitant]
  6. LENDORMIN (BROTIZOLAM) TABLET [Concomitant]
  7. FAMOTIDINE [Concomitant]
  8. GASMOTIN (MOSAPRIDE CITRATE) [Concomitant]
  9. NAUZELIN (DOMPERIDONE) [Concomitant]
  10. GOREI-SAN (HERBAL EXTRACTS NOS) [Concomitant]

REACTIONS (4)
  - GASTRIC ULCER HAEMORRHAGE [None]
  - METASTASES TO LIVER [None]
  - SMALL CELL CARCINOMA [None]
  - SMALL CELL LUNG CANCER STAGE UNSPECIFIED [None]
